FAERS Safety Report 4705529-4 (Version None)
Quarter: 2005Q2

REPORT INFORMATION
  Report Type: 
  Country: None (occurrence: None)
  Receive Date: 20050629
  Receipt Date: 20050607
  Transmission Date: 20051028
  Serious: Yes (Death, Other)
  Sender: FDA-Public Use
  Company Number: 200112455EU

PATIENT
  Age: 57 Year
  Sex: Male

DRUGS (5)
  1. FLUOROURACIL [Suspect]
     Indication: SQUAMOUS CELL CARCINOMA
     Dosage: 1 G/M**2 IV
     Route: 042
     Dates: start: 20010319, end: 20010323
  2. CISPLATIN [Suspect]
     Indication: SQUAMOUS CELL CARCINOMA
     Dosage: 100 MG/M**2 IV
     Route: 042
     Dates: start: 20010319, end: 20010319
  3. LOSEC [Concomitant]
  4. EPREX [Concomitant]
  5. DURAGESIC-100 [Concomitant]

REACTIONS (16)
  - BOWEN'S DISEASE [None]
  - BRONCHOPNEUMONIA [None]
  - CACHEXIA [None]
  - CATHETER RELATED INFECTION [None]
  - CHEST PAIN [None]
  - DYSPNOEA [None]
  - FEBRILE NEUTROPENIA [None]
  - HYPOKALAEMIA [None]
  - MALIGNANT NEOPLASM PROGRESSION [None]
  - METASTASES TO BONE [None]
  - METASTASES TO CENTRAL NERVOUS SYSTEM [None]
  - METASTASES TO LUNG [None]
  - MUSCLE ATROPHY [None]
  - SINUS BRADYCARDIA [None]
  - SUPERINFECTION [None]
  - VENTRICULAR HYPERTROPHY [None]
